FAERS Safety Report 8873080 (Version 1)
Quarter: 2012Q4

REPORT INFORMATION
  Report Type: 
  Country: US (occurrence: US)
  Receive Date: 20121030
  Receipt Date: 20121030
  Transmission Date: 20130627
  Serious: Yes (Hospitalization, Other)
  Sender: FDA-Public Use
  Company Number: US-BAYER-2012-082476

PATIENT
  Age: 57 Year
  Sex: Male

DRUGS (11)
  1. NEXAVAR [Suspect]
     Indication: LIVER, CANCER OF
     Dosage: 200 mg, BID
     Dates: start: 20120607, end: 2012
  2. NEXAVAR [Suspect]
     Indication: LIVER, CANCER OF
     Dosage: 400 mg, BID
     Dates: start: 2012
  3. BENADRYL [Concomitant]
  4. COMPAZINE [Concomitant]
  5. EPZICOM [Concomitant]
  6. FAMVIR [FAMCICLOVIR] [Concomitant]
  7. HEPSERA [Concomitant]
  8. PREDNISONE [Concomitant]
  9. PROPANOLOL [Concomitant]
  10. SPIRONOLACTONE [Concomitant]
  11. SUSTIVA [Concomitant]

REACTIONS (6)
  - Oesophageal varices haemorrhage [Recovered/Resolved]
  - Pancytopenia [None]
  - Alpha 1 foetoprotein increased [None]
  - White blood cell count decreased [None]
  - Platelet count decreased [None]
  - Haemoglobin decreased [None]
